FAERS Safety Report 7830950-5 (Version None)
Quarter: 2011Q4

REPORT INFORMATION
  Report Type: 
  Country: None (occurrence: None)
  Receive Date: 20111021
  Receipt Date: 20111017
  Transmission Date: 20120403
  Serious: Yes (Other)
  Sender: FDA-Public Use
  Company Number: US-PFIZER INC-2011249211

PATIENT
  Sex: Female
  Weight: 77.1 kg

DRUGS (4)
  1. NEXIUM [Concomitant]
     Dosage: UNK
  2. NEURONTIN [Suspect]
     Indication: NEUROPATHY PERIPHERAL
     Dosage: TWO TABLETS OF 600 MG, 3X/DAY
     Route: 048
     Dates: start: 20090101
  3. SPIRONOLACTONE [Concomitant]
     Dosage: UNK
  4. TOPROL-XL [Concomitant]
     Dosage: 200 MG

REACTIONS (6)
  - FLUID RETENTION [None]
  - DERMATITIS CONTACT [None]
  - HEPATIC ENZYME INCREASED [None]
  - PAIN [None]
  - WEIGHT FLUCTUATION [None]
  - BLOOD BILIRUBIN INCREASED [None]
